FAERS Safety Report 6232880-1 (Version None)
Quarter: 2009Q2

REPORT INFORMATION
  Report Type: 
  Country: None (occurrence: None)
  Receive Date: 20090612
  Receipt Date: 20090612
  Transmission Date: 20091009
  Serious: Yes (Hospitalization)
  Sender: FDA-Public Use
  Company Number: None

PATIENT
  Age: 8 Year
  Sex: Male
  Weight: 22.6799 kg

DRUGS (1)
  1. ZOLOFT [Suspect]
     Indication: DYSTONIA
     Dosage: 50MG DAILY PO
     Route: 048
     Dates: start: 20080922, end: 20081030

REACTIONS (14)
  - AGGRESSION [None]
  - CONDITION AGGRAVATED [None]
  - CONVULSION [None]
  - DYSPHAGIA [None]
  - DYSTONIA [None]
  - FAECAL INCONTINENCE [None]
  - HALLUCINATION [None]
  - HOMICIDAL IDEATION [None]
  - HYPOPHAGIA [None]
  - LETHARGY [None]
  - SLEEP DISORDER [None]
  - SUICIDAL IDEATION [None]
  - TARDIVE DYSKINESIA [None]
  - URINARY INCONTINENCE [None]
